FAERS Safety Report 13717074 (Version 2)
Quarter: 2017Q3

REPORT INFORMATION
  Report Type: Report from Study
  Country: US (occurrence: US)
  Receive Date: 20170705
  Receipt Date: 20170714
  Transmission Date: 20171127
  Serious: Yes (Hospitalization, Other)
  Sender: FDA-Public Use
  Company Number: US-GILEAD-2017-0275381

PATIENT
  Age: 54 Year
  Sex: Male
  Weight: 84.35 kg

DRUGS (11)
  1. FUROSEMIDE. [Concomitant]
     Active Substance: FUROSEMIDE
  2. LOVENOX [Concomitant]
     Active Substance: ENOXAPARIN SODIUM
  3. WARFARIN [Concomitant]
     Active Substance: WARFARIN
  4. TRAMADOL. [Concomitant]
     Active Substance: TRAMADOL
  5. MELOXICAM. [Concomitant]
     Active Substance: MELOXICAM
  6. AMBRISENTAN [Suspect]
     Active Substance: AMBRISENTAN
     Indication: PULMONARY ARTERIAL HYPERTENSION
     Dosage: 5 MG, QD
     Route: 048
     Dates: start: 20170114
  7. REVATIO [Concomitant]
     Active Substance: SILDENAFIL CITRATE
  8. AMBRISENTAN [Suspect]
     Active Substance: AMBRISENTAN
     Dosage: 5 MG, QD
     Route: 065
  9. AMLODIPINE [Concomitant]
     Active Substance: AMLODIPINE BESYLATE
  10. POTASSIUM CHLORIDE. [Concomitant]
     Active Substance: POTASSIUM CHLORIDE
  11. ADCIRCA [Concomitant]
     Active Substance: TADALAFIL

REACTIONS (6)
  - Joint swelling [Recovered/Resolved]
  - Right ventricular failure [Unknown]
  - Oedema peripheral [Unknown]
  - Peripheral swelling [Recovered/Resolved]
  - Weight increased [Unknown]
  - Dyspnoea [Unknown]

NARRATIVE: CASE EVENT DATE: 20170524
